FAERS Safety Report 6629337-2 (Version None)
Quarter: 2010Q1

REPORT INFORMATION
  Report Type: 
  Country: None (occurrence: None)
  Receive Date: 20100311
  Receipt Date: 20090820
  Transmission Date: 20100710
  Serious: No
  Sender: FDA-Public Use
  Company Number: US-BIOGENIDEC-2009BI021471

PATIENT
  Sex: Female

DRUGS (13)
  1. AVONEX [Suspect]
     Indication: MULTIPLE SCLEROSIS
     Route: 030
     Dates: start: 20040101, end: 20060101
  2. AVONEX [Suspect]
     Route: 030
     Dates: start: 20080101
  3. NEURONTIN [Concomitant]
     Route: 048
  4. DEPO-PROVERA [Concomitant]
     Route: 030
  5. OXYBUTYNIN CHLORIDE [Concomitant]
     Route: 048
  6. ZITHROMAX [Concomitant]
     Route: 048
  7. ALBUTEROL [Concomitant]
  8. CELEXA [Concomitant]
     Route: 048
  9. VALIUM [Concomitant]
     Route: 048
  10. PRILOSEC [Concomitant]
     Route: 048
  11. CLOBETASOL PROPRIONATE [Concomitant]
     Route: 061
  12. TRIAMCINOLONE ACETONIDE [Concomitant]
     Route: 061
  13. NORCO [Concomitant]
     Route: 048

REACTIONS (4)
  - CHOLECYSTITIS CHRONIC [None]
  - CHOLELITHIASIS [None]
  - LIVER DISORDER [None]
  - PAIN [None]
